FAERS Safety Report 4371659-2 (Version None)
Quarter: 2004Q2

REPORT INFORMATION
  Report Type: 
  Country: None (occurrence: None)
  Receive Date: 20040602
  Receipt Date: 20040520
  Transmission Date: 20050107
  Serious: Yes (Other)
  Sender: FDA-Public Use
  Company Number: 2004011123

PATIENT
  Age: 47 Year
  Sex: Female
  Weight: 104.3273 kg

DRUGS (6)
  1. NITROSTAT [Suspect]
     Indication: CHEST PAIN
     Dosage: 0.4 MG (AS NEEDED), SUBLIGUAL
     Route: 060
  2. NITROSTAT [Suspect]
     Indication: ARTERIOSPASM CORONARY
  3. ISOSORBIDE MONONITRATE [Concomitant]
  4. LIOTHYRONINE SODIUM [Concomitant]
  5. ROFECOXIB [Concomitant]
  6. VERAPAMIL [Concomitant]

REACTIONS (4)
  - CHEST PAIN [None]
  - DRUG INEFFECTIVE [None]
  - PHARMACEUTICAL PRODUCT COMPLAINT [None]
  - THYROID GLAND CANCER [None]
